FAERS Safety Report 10867867 (Version 2)
Quarter: 2015Q2

REPORT INFORMATION
  Report Type: Report from Study
  Country: NL (occurrence: NL)
  Receive Date: 20150225
  Receipt Date: 20150427
  Transmission Date: 20150821
  Serious: Yes (Death)
  Sender: FDA-Public Use
  Company Number: NL-AMGEN-NLDSL2015016027

PATIENT
  Age: 50 Year
  Sex: Male

DRUGS (1)
  1. NEULASTA [Suspect]
     Active Substance: PEGFILGRASTIM
     Indication: PROPHYLAXIS
     Dosage: 10 MG/ML WWSP 0.6ML, EVERY 3 WEEKS
     Route: 058
     Dates: start: 20140916

REACTIONS (1)
  - Death [Fatal]
